FAERS Safety Report 20923689 (Version 2)
Quarter: 2022Q2

REPORT INFORMATION
  Report Type: Spontaneous
  Country: DK (occurrence: DK)
  Receive Date: 20220607
  Receipt Date: 20220613
  Transmission Date: 20220721
  Serious: Yes (Other)
  Sender: FDA-Public Use
  Company Number: DK-JNJFOC-20220561898

PATIENT

DRUGS (1)
  1. NICORETTE [Suspect]
     Active Substance: NICOTINE
     Indication: Smoking cessation therapy
     Dosage: QD (PRODUCT DOSE OR QUANTITY: ACCORDING TO THE INSTRUCTIONS )
     Route: 065

REACTIONS (3)
  - Tooth loss [Unknown]
  - Product physical consistency issue [Unknown]
  - Nicotine dependence [Unknown]
